FAERS Safety Report 22993345 (Version 3)
Quarter: 2024Q1

REPORT INFORMATION
  Report Type: Spontaneous
  Country: PE (occurrence: PE)
  Receive Date: 20230927
  Receipt Date: 20240128
  Transmission Date: 20240410
  Serious: Yes (Other)
  Sender: FDA-Public Use
  Company Number: PE-002147023-NVSC2021PE301708

PATIENT
  Age: 66 Year
  Sex: Female

DRUGS (13)
  1. FULVESTRANT [Suspect]
     Active Substance: FULVESTRANT
     Indication: Product used for unknown indication
     Dosage: UNK
     Route: 065
  2. KISQALI [Suspect]
     Active Substance: RIBOCICLIB
     Dosage: 1 DOSAGE FORM, QD
     Route: 065
  3. KISQALI [Suspect]
     Active Substance: RIBOCICLIB
     Dosage: 2 DOSAGE FORM, QD
     Route: 048
     Dates: start: 20200210
  4. KISQALI [Suspect]
     Active Substance: RIBOCICLIB
     Dosage: 200 MG, QD
     Route: 048
     Dates: start: 20200210
  5. KISQALI [Suspect]
     Active Substance: RIBOCICLIB
     Dosage: 200 MG, QD
     Route: 048
  6. KISQALI [Suspect]
     Active Substance: RIBOCICLIB
     Dosage: 200 MG, QD
     Route: 048
  7. KISQALI [Suspect]
     Active Substance: RIBOCICLIB
     Dosage: 200 MG, QD (1 MULTIPLY 200 MG)
     Route: 048
     Dates: start: 20220802, end: 20220823
  8. KISQALI [Suspect]
     Active Substance: RIBOCICLIB
     Indication: Breast cancer
     Dosage: 400 MG, QD
     Route: 048
  9. KISQALI [Suspect]
     Active Substance: RIBOCICLIB
     Dosage: 400 MG, QD
     Route: 048
     Dates: start: 20200210, end: 20220411
  10. KISQALI [Suspect]
     Active Substance: RIBOCICLIB
     Dosage: 400 MG, QD
     Route: 048
     Dates: start: 202002
  11. KISQALI [Suspect]
     Active Substance: RIBOCICLIB
     Dosage: 400 MG, QD
     Route: 065
  12. KISQALI [Suspect]
     Active Substance: RIBOCICLIB
     Dosage: 400 MG, QD (THROUGH THE MOUTH)
     Route: 048
     Dates: start: 20200210
  13. KISQALI [Suspect]
     Active Substance: RIBOCICLIB
     Indication: Breast cancer metastatic
     Dosage: 600 MG, QD
     Route: 048
     Dates: start: 202002

REACTIONS (31)
  - Liver injury [Unknown]
  - Spinal cord herniation [Unknown]
  - Diabetes mellitus [Unknown]
  - Feeling abnormal [Unknown]
  - Tremor [Unknown]
  - Illness [Unknown]
  - Nausea [Recovered/Resolved]
  - Nausea [Unknown]
  - Vomiting [Recovering/Resolving]
  - Rash [Unknown]
  - Haemoglobin decreased [Unknown]
  - Stress [Recovering/Resolving]
  - Tension [Recovering/Resolving]
  - Discomfort [Recovered/Resolved]
  - Decreased immune responsiveness [Recovering/Resolving]
  - Pruritus [Unknown]
  - Muscle contracture [Unknown]
  - Nervous system disorder [Unknown]
  - Abdominal discomfort [Unknown]
  - Gastric infection [Unknown]
  - Abdominal pain [Unknown]
  - Diarrhoea [Unknown]
  - Nasopharyngitis [Unknown]
  - Product dose omission issue [Unknown]
  - Drug intolerance [Unknown]
  - Off label use [Unknown]
  - Contusion [Unknown]
  - Pigmentation disorder [Unknown]
  - Pruritus [Unknown]
  - Hypertension [Unknown]
  - Hypersensitivity [Unknown]

NARRATIVE: CASE EVENT DATE: 20200201
